FAERS Safety Report 6274430-X (Version None)
Quarter: 2009Q3

REPORT INFORMATION
  Report Type: 
  Country: None (occurrence: None)
  Receive Date: 20090720
  Receipt Date: 20090710
  Transmission Date: 20100115
  Serious: Yes (Other)
  Sender: FDA-Public Use
  Company Number: AU-PFIZER INC-2009238544

PATIENT

DRUGS (3)
  1. CELEBREX [Suspect]
     Indication: OSTEOARTHRITIS
     Dosage: 200 MG DAILY FOR YEARS (UNSPECIFIED)
  2. NEXIUM [Concomitant]
  3. WARFARIN [Concomitant]

REACTIONS (2)
  - SPINAL FUSION SURGERY [None]
  - TRANSIENT ISCHAEMIC ATTACK [None]
